FAERS Safety Report 14455360 (Version 2)
Quarter: 2018Q1

REPORT INFORMATION
  Report Type: Spontaneous
  Country: BE (occurrence: BE)
  Receive Date: 20180129
  Receipt Date: 20180322
  Transmission Date: 20180509
  Serious: Yes (Hospitalization, Other)
  Sender: FDA-Public Use
  Company Number: BE-ASTRAZENECA-2018SE10293

PATIENT
  Age: 16752 Day
  Sex: Female
  Weight: 100 kg

DRUGS (6)
  1. FORXIGA [Suspect]
     Active Substance: DAPAGLIFLOZIN
     Indication: TYPE 2 DIABETES MELLITUS
     Route: 048
     Dates: start: 20171003, end: 20171213
  2. SIMVASTATIN. [Concomitant]
     Active Substance: SIMVASTATIN
  3. TRAMADOL. [Concomitant]
     Active Substance: TRAMADOL
     Dosage: 100 MG, DAILY, WHEN NEEDED
  4. COVERSYL [Concomitant]
     Active Substance: PERINDOPRIL
  5. NAPROXEN. [Concomitant]
     Active Substance: NAPROXEN
     Dosage: 550 MG, TWO TIMES A DAY WHEN NEEDED.
  6. GLUCOPHAGE [Concomitant]
     Active Substance: METFORMIN HYDROCHLORIDE

REACTIONS (4)
  - Pyelonephritis acute [Recovered/Resolved]
  - Nephrolithiasis [Unknown]
  - Urinary tract infection fungal [Recovered/Resolved]
  - Renal abscess [Unknown]

NARRATIVE: CASE EVENT DATE: 20171213
